FAERS Safety Report 12846571 (Version 1)
Quarter: 2016Q4

REPORT INFORMATION
  Report Type: Spontaneous
  Country: SE (occurrence: SE)
  Receive Date: 20161014
  Receipt Date: 20161014
  Transmission Date: 20170207
  Serious: Yes (Hospitalization)
  Sender: FDA-Public Use
  Company Number: SE-ORION CORPORATION ORION PHARMA-SPIR2016-0012

PATIENT
  Age: 72 Year
  Sex: Female

DRUGS (3)
  1. SPIRONOLACTONE (TRADE NAME UNKNOWN) [Suspect]
     Active Substance: SPIRONOLACTONE
     Dosage: STRENGTH: 25 MG
     Route: 065
  2. LOSARTAN/HYDROKLORTIAZID [Suspect]
     Active Substance: HYDROCHLOROTHIAZIDE\LOSARTAN
     Dosage: STRENGTH: 100/25 MG
     Route: 065
  3. ARCOXIA [Suspect]
     Active Substance: ETORICOXIB
     Dosage: STRENGTH: 30 MG
     Route: 065

REACTIONS (1)
  - Acute kidney injury [Recovered/Resolved]
